FAERS Safety Report 9888192 (Version 4)
Quarter: 2014Q1

REPORT INFORMATION
  Report Type: Spontaneous
  Country: JP (occurrence: JP)
  Receive Date: 20140211
  Receipt Date: 20140327
  Transmission Date: 20141002
  Serious: Yes (Hospitalization)
  Sender: FDA-Public Use
  Company Number: JP-JNJFOC-20140204569

PATIENT
  Age: 9 Decade
  Sex: Female

DRUGS (2)
  1. TRAMCET [Suspect]
     Indication: PAIN
     Route: 048
     Dates: start: 20140114, end: 20140119
  2. PRIMPERAN [Suspect]
     Indication: PROPHYLAXIS OF NAUSEA AND VOMITING
     Route: 048
     Dates: start: 20140114, end: 20140119

REACTIONS (1)
  - Interstitial lung disease [Recovering/Resolving]
